FAERS Safety Report 19561710 (Version 1)
Quarter: 2021Q3

REPORT INFORMATION
  Report Type: Spontaneous
  Country: CA (occurrence: CA)
  Receive Date: 20210714
  Receipt Date: 20210714
  Transmission Date: 20211014
  Serious: Yes (Death)
  Sender: FDA-Public Use
  Company Number: CA-BAYER-2021-174617

PATIENT
  Age: 92 Year
  Sex: Female

DRUGS (2)
  1. ADALAT XL [Suspect]
     Active Substance: NIFEDIPINE
     Dosage: 30 MG (6 EVERY 1 DAYS)
  2. NAPROXEN SODIUM ({= 220 MG) [Suspect]
     Active Substance: NAPROXEN SODIUM

REACTIONS (11)
  - Accidental overdose [Fatal]
  - Drug interaction [Fatal]
  - Rib fracture [Fatal]
  - Skin abrasion [Fatal]
  - Gastric dilatation [Fatal]
  - Arrhythmia [Fatal]
  - Death [Fatal]
  - Fall [Fatal]
  - Impaired gastric emptying [Fatal]
  - Drug-disease interaction [Fatal]
  - Malaise [Fatal]
